FAERS Safety Report 17418929 (Version 1)
Quarter: 2020Q1

REPORT INFORMATION
  Report Type: Spontaneous
  Country: US (occurrence: US)
  Receive Date: 20200211
  Receipt Date: 20200211
  Transmission Date: 20200409
  Serious: No
  Sender: FDA-Public Use
  Company Number: US-NEPHRON STERILE COMPOUNDING CENTER-2080156

PATIENT
  Age: 31 Year
  Sex: Female

DRUGS (5)
  1. SUCCINYLCHOLINE CHLORIDE. [Suspect]
     Active Substance: SUCCINYLCHOLINE CHLORIDE
     Indication: ENDOTRACHEAL INTUBATION
     Route: 040
     Dates: start: 20200124, end: 20200124
  2. KETOROLAC TROMETHAMINE. [Concomitant]
     Active Substance: KETOROLAC TROMETHAMINE
     Route: 042
     Dates: start: 20200124, end: 20200124
  3. OXYTOCIN. [Concomitant]
     Active Substance: OXYTOCIN
     Route: 042
     Dates: start: 20200124, end: 20200124
  4. LIDOCAINE HYDROCHLORIDE. [Concomitant]
     Active Substance: LIDOCAINE HYDROCHLORIDE
     Route: 042
     Dates: start: 20200124, end: 20200124
  5. METHYLERGONOVINE MALEATE. [Concomitant]
     Active Substance: METHYLERGONOVINE MALEATE
     Route: 042
     Dates: start: 20200124, end: 20200124

REACTIONS (1)
  - Drug ineffective [Recovered/Resolved]

NARRATIVE: CASE EVENT DATE: 20200124
